FAERS Safety Report 8994225 (Version 1)
Quarter: 2013Q1

REPORT INFORMATION
  Report Type: Spontaneous
  Country: US (occurrence: US)
  Receive Date: 20130102
  Receipt Date: 20130102
  Transmission Date: 20140127
  Serious: No
  Sender: FDA-Public Use
  Company Number: US-AMGEN-USASP2012081296

PATIENT
  Age: 57 Year
  Sex: Male

DRUGS (1)
  1. ENBREL [Suspect]
     Indication: PEMPHIGUS
     Dosage: 50 MG, QWK
     Dates: end: 201208

REACTIONS (2)
  - Skin ulcer [Recovered/Resolved]
  - Condition aggravated [Unknown]
